FAERS Safety Report 8273933-6 (Version None)
Quarter: 2012Q2

REPORT INFORMATION
  Report Type: 
  Country: None (occurrence: None)
  Receive Date: 20120411
  Receipt Date: 20120330
  Transmission Date: 20120825
  Serious: Yes (Hospitalization)
  Sender: FDA-Public Use
  Company Number: US-ELI_LILLY_AND_COMPANY-US201203002660

PATIENT
  Sex: Female
  Weight: 54.875 kg

DRUGS (13)
  1. AMITIZA [Concomitant]
     Dosage: 24 UG, BID
  2. PREDNISONE [Concomitant]
     Indication: CHRONIC OBSTRUCTIVE PULMONARY DISEASE
     Dosage: 10 MG, UNK
     Route: 048
  3. CARBIDOPA AND LEVODOPA [Concomitant]
  4. ALPRAZOLAM [Concomitant]
  5. VITAMIN D [Concomitant]
  6. RYTHMOL [Concomitant]
  7. FERROUS SULFATE TAB [Concomitant]
  8. WARFARIN SODIUM [Concomitant]
     Indication: ATRIAL FIBRILLATION
  9. MIRALAX [Concomitant]
  10. MULTI-VITAMIN [Concomitant]
  11. FORTEO [Suspect]
     Indication: OSTEOPOROSIS
     Dosage: 20 UG, QD
     Route: 058
     Dates: start: 20120210, end: 20120306
  12. POTASSIUM [Concomitant]
  13. OMEPRAZOLE [Concomitant]

REACTIONS (3)
  - METABOLIC ENCEPHALOPATHY [None]
  - HYPERCALCAEMIA [None]
  - HYPOVOLAEMIA [None]
